FAERS Safety Report 9929502 (Version 2)
Quarter: 2014Q1

REPORT INFORMATION
  Report Type: Spontaneous
  Country: JP (occurrence: JP)
  Receive Date: 20140227
  Receipt Date: 20140227
  Transmission Date: 20141002
  Serious: Yes (Other)
  Sender: FDA-Public Use
  Company Number: JP-VIIV HEALTHCARE LIMITED-B0971093A

PATIENT
  Age: 39 Year
  Sex: Male

DRUGS (5)
  1. LAMIVUDINE-HIV [Suspect]
     Indication: ACQUIRED IMMUNODEFICIENCY SYNDROME
     Route: 065
  2. ABACAVIR [Suspect]
     Indication: ACQUIRED IMMUNODEFICIENCY SYNDROME
     Route: 065
  3. LOPINAVIR + RITONAVIR [Suspect]
     Indication: ACQUIRED IMMUNODEFICIENCY SYNDROME
     Route: 065
  4. ATOVAQUONE [Concomitant]
     Indication: PROPHYLAXIS
  5. AMPHOTERICIN B [Concomitant]
     Indication: PROPHYLAXIS

REACTIONS (8)
  - Histiocytosis haematophagic [Recovered/Resolved]
  - Body temperature increased [Unknown]
  - Alanine aminotransferase increased [Unknown]
  - Aspartate aminotransferase increased [Unknown]
  - Gamma-glutamyltransferase increased [Unknown]
  - Neutropenia [Unknown]
  - Serum ferritin increased [Unknown]
  - Disseminated intravascular coagulation [Unknown]
